FAERS Safety Report 8811483 (Version 2)
Quarter: 2012Q4

REPORT INFORMATION
  Report Type: 
  Country: JP (occurrence: JP)
  Receive Date: 20120921
  Receipt Date: 20121008
  Transmission Date: 20130627
  Serious: Yes (Hospitalization)
  Sender: FDA-Public Use
  Company Number: JP-JNJFOC-20120909258

PATIENT
  Sex: Female
  Weight: 40 kg

DRUGS (8)
  1. XARELTO [Suspect]
     Indication: CEREBROVASCULAR ACCIDENT PROPHYLAXIS
     Route: 048
     Dates: start: 20120821, end: 20120911
  2. XARELTO [Suspect]
     Indication: ATRIAL FIBRILLATION
     Route: 048
     Dates: start: 20120821, end: 20120911
  3. ANTIDEPRESSANTS [Concomitant]
  4. DIGESTIVE ADVANTAGE [Concomitant]
  5. ALL OTHER THERAPEUTIC PRODUCTS [Concomitant]
  6. ALL OTHER THERAPEUTIC PRODUCTS [Concomitant]
  7. RHEUM PALMATUM TINCTURE [Concomitant]
  8. SODIUM BICARBONATE [Concomitant]

REACTIONS (1)
  - Pulmonary embolism [Unknown]
